FAERS Safety Report 15392745 (Version 1)
Quarter: 2018Q3

REPORT INFORMATION
  Report Type: Spontaneous
  Country: JP (occurrence: JP)
  Receive Date: 20180917
  Receipt Date: 20180917
  Transmission Date: 20181010
  Serious: Yes (Hospitalization)
  Sender: FDA-Public Use
  Company Number: JP-PFIZER INC-2018103071

PATIENT
  Age: 88 Year
  Sex: Male
  Weight: 71 kg

DRUGS (2)
  1. ESTRACYT [Suspect]
     Active Substance: ESTRAMUSTINE PHOSPHATE SODIUM
     Indication: PROSTATE CANCER
     Dosage: 313.4 MG, DAILY (156.7 MG/12 HOURS)
     Route: 048
     Dates: start: 20180105, end: 20180227
  2. PREDNISOLONE. [Suspect]
     Active Substance: PREDNISOLONE
     Dosage: 5 MG, 1X/DAY
     Route: 048
     Dates: start: 20180105

REACTIONS (2)
  - Deep vein thrombosis [Recovering/Resolving]
  - Pulmonary artery thrombosis [Recovering/Resolving]

NARRATIVE: CASE EVENT DATE: 20180227
